FAERS Safety Report 5278125-0 (Version None)
Quarter: 2007Q1

REPORT INFORMATION
  Report Type: 
  Country: None (occurrence: None)
  Receive Date: 20061213
  Receipt Date: 20040908
  Transmission Date: 20070707
  Serious: No
  Sender: FDA-Public Use
  Company Number: 2004UW18926

PATIENT
  Age: 16 Year
  Sex: Female

DRUGS (1)
  1. SEROQUEL [Suspect]
     Indication: PSYCHOTIC DISORDER
     Dosage: VARYING OVER A 2 YEAR PERIOID

REACTIONS (1)
  - TARDIVE DYSKINESIA [None]
